FAERS Safety Report 21802647 (Version 1)
Quarter: 2022Q4

REPORT INFORMATION
  Report Type: Report from Study
  Country: CO (occurrence: CO)
  Receive Date: 20221231
  Receipt Date: 20221231
  Transmission Date: 20230113
  Serious: Yes (Other)
  Sender: FDA-Public Use
  Company Number: CO-TAKEDA-2020TUS024232

PATIENT
  Age: 45 Year
  Sex: Female
  Weight: 58 kg

DRUGS (3)
  1. PONATINIB [Suspect]
     Active Substance: PONATINIB
     Indication: Chronic myeloid leukaemia
     Dosage: 30 MILLIGRAM, QD
     Route: 048
     Dates: start: 20181122, end: 20220615
  2. PONATINIB [Suspect]
     Active Substance: PONATINIB
     Dosage: UNK
     Route: 065
     Dates: start: 20220707
  3. LEVOTHYROXINE [Concomitant]
     Active Substance: LEVOTHYROXINE
     Dosage: 75 MICROGRAM
     Dates: start: 20190604

REACTIONS (9)
  - Uterine haemorrhage [Unknown]
  - Abortion spontaneous [Unknown]
  - Pruritus [Unknown]
  - Erythema [Unknown]
  - Pain [Unknown]
  - Pregnancy [Unknown]
  - Arthralgia [Recovered/Resolved]
  - Headache [Recovered/Resolved]
  - Xerosis [Unknown]

NARRATIVE: CASE EVENT DATE: 20200526
